FAERS Safety Report 5223770-1 (Version None)
Quarter: 2007Q1

REPORT INFORMATION
  Report Type: 
  Country: None (occurrence: None)
  Receive Date: 20070130
  Receipt Date: 20070125
  Transmission Date: 20070707
  Serious: Yes (Hospitalization, Other)
  Sender: FDA-Public Use
  Company Number: DE-AVENTIS-200710212DE

PATIENT
  Age: 70 Year
  Sex: Female

DRUGS (2)
  1. TAXOTERE [Suspect]
     Dates: start: 20060509, end: 20060823
  2. XELODA [Suspect]
     Dates: start: 20060509, end: 20060823

REACTIONS (2)
  - NAIL DISORDER [None]
  - PARALYSIS [None]
